FAERS Safety Report 6917344-1 (Version None)
Quarter: 2010Q3

REPORT INFORMATION
  Report Type: 
  Country: None (occurrence: None)
  Receive Date: 20100805
  Receipt Date: 20100720
  Transmission Date: 20110219
  Serious: Yes (Hospitalization)
  Sender: FDA-Public Use
  Company Number: 2010RR-33492

PATIENT
  Age: 78 Year
  Sex: Female

DRUGS (13)
  1. FENTANYL [Suspect]
     Indication: PAIN
     Dosage: 125 UG, QD TRANSDERMAL
     Route: 062
     Dates: start: 20100208, end: 20100323
  2. SEVREDOL 20MG (MORPHINE SULFATE) [Suspect]
     Indication: PAIN
     Dosage: 20 MG, QID ORAL
     Route: 048
     Dates: start: 20100301
  3. NEURONTIN [Concomitant]
  4. TOREM 5 (TORASEMIDE) TABLET [Concomitant]
  5. BISOPROLOL (BISOPROLOL) FILM-COATED TABLET [Concomitant]
  6. RAMIPRIL (RAMIPRIL) TABLET [Concomitant]
  7. PANTOZOL 20 MG (PANTOPRAZOLE) [Concomitant]
  8. MOXONIDINE (MOXONIDINE) FILM-COATED TABLET [Concomitant]
  9. L-THYROX 100 (LEVOTHYROXINE SODIUM) TABLET [Concomitant]
  10. HUMALOG (INSULIN LISPRO) INJECTIONS [Concomitant]
  11. LANTUS [Concomitant]
  12. DIPYRONE TAB [Concomitant]
  13. ENOXAPARIN SODIUM [Concomitant]

REACTIONS (9)
  - ATELECTASIS [None]
  - GENERAL PHYSICAL HEALTH DETERIORATION [None]
  - HEPATIC LESION [None]
  - LUNG INFILTRATION [None]
  - METASTASES TO LIVER [None]
  - OVERDOSE [None]
  - RESPIRATORY DEPRESSION [None]
  - SOMNOLENCE [None]
  - TRACHEAL DISORDER [None]
